FAERS Safety Report 7017418-3 (Version None)
Quarter: 2010Q3

REPORT INFORMATION
  Report Type: 
  Country: None (occurrence: None)
  Receive Date: 20100928
  Receipt Date: 20100526
  Transmission Date: 20110219
  Serious: Yes (Life-Threatening, Hospitalization)
  Sender: FDA-Public Use
  Company Number: DE-RANBAXY-2010RR-33407

PATIENT
  Age: 84 Year
  Sex: Female
  Weight: 72 kg

DRUGS (11)
  1. SPIRONOLACTONE [Suspect]
     Indication: HYPERTENSION
     Dosage: 25 MG, QD
     Route: 065
     Dates: start: 20091006, end: 20091126
  2. XIPAMID [Suspect]
     Indication: HYPERTENSION
     Dosage: 10 MG, QD
     Route: 048
     Dates: start: 20091006, end: 20091126
  3. TORASEMID [Suspect]
     Indication: HYPERTENSION
     Dosage: 5 MG, QD
     Route: 048
     Dates: start: 20091006, end: 20091126
  4. RAMIPRIL [Suspect]
     Indication: HYPERTENSION
     Dosage: 2.5 MG, QD
     Route: 048
     Dates: start: 20091006, end: 20091126
  5. MICTONORM [Suspect]
     Indication: STRESS URINARY INCONTINENCE
     Dosage: 15 MG, QD
     Route: 048
     Dates: start: 20091006, end: 20091126
  6. MELPERON [Suspect]
     Indication: VASCULAR DEMENTIA
     Dosage: 25 MG, QD
     Route: 048
     Dates: start: 20091006, end: 20091126
  7. AKINETON [Concomitant]
     Indication: EXTRAPYRAMIDAL DISORDER
     Dosage: 2 MG, QD
     Route: 048
     Dates: start: 20091006
  8. ZOLPIDEM AL 5 MG [Concomitant]
     Indication: INITIAL INSOMNIA
     Dosage: 5 MG, QD
     Route: 048
     Dates: start: 20091006, end: 20091126
  9. PANTOPRAZOL 40 MG [Concomitant]
     Indication: PROPHYLAXIS AGAINST GASTROINTESTINAL ULCER
     Dosage: 40 MG, QD
     Route: 048
     Dates: start: 20091006, end: 20091126
  10. CLOPIDOGREL [Concomitant]
     Indication: ISCHAEMIC HEART DISEASE PROPHYLAXIS
     Dosage: 75 MG, QD
     Route: 048
     Dates: start: 20091006
  11. SIMVASTATIN [Concomitant]
     Indication: ISCHAEMIC HEART DISEASE PROPHYLAXIS
     Dosage: 20 MG, QD
     Route: 048
     Dates: start: 20091006, end: 20091126

REACTIONS (2)
  - DRUG INTERACTION [None]
  - RENAL FAILURE ACUTE [None]
